FAERS Safety Report 16280144 (Version 1)
Quarter: 2019Q2

REPORT INFORMATION
  Report Type: Report from Study
  Country: US (occurrence: US)
  Receive Date: 20190507
  Receipt Date: 20190507
  Transmission Date: 20190711
  Serious: Yes (Other)
  Sender: FDA-Public Use
  Company Number: US-ROCHE-2309558

PATIENT
  Age: 45 Year
  Sex: Female

DRUGS (1)
  1. OCREVUS [Suspect]
     Active Substance: OCRELIZUMAB
     Indication: RELAPSING MULTIPLE SCLEROSIS
     Route: 042
     Dates: start: 20190405

REACTIONS (11)
  - Vomiting [Recovered/Resolved]
  - Blood pressure increased [Unknown]
  - Syncope [Recovered/Resolved]
  - Dizziness [Recovered/Resolved]
  - Joint stiffness [Recovered/Resolved]
  - Diarrhoea [Recovered/Resolved]
  - Depression [Recovered/Resolved]
  - Erythema [Recovered/Resolved]
  - Mood swings [Recovered/Resolved]
  - Throat tightness [Recovered/Resolved]
  - Feeling hot [Recovered/Resolved]

NARRATIVE: CASE EVENT DATE: 20190405
